FAERS Safety Report 7296555-2 (Version None)
Quarter: 2011Q1

REPORT INFORMATION
  Report Type: 
  Country: None (occurrence: None)
  Receive Date: 20110216
  Receipt Date: 20110207
  Transmission Date: 20110831
  Serious: Yes (Other)
  Sender: FDA-Public Use
  Company Number: PHHY2011FI10145

PATIENT
  Sex: Male

DRUGS (1)
  1. TRILEPTAL [Suspect]
     Indication: EPILEPSY
     Dosage: 300 MG IN MORNINGS AND 450 MG IN EVENINGS
     Route: 048
     Dates: start: 20060101

REACTIONS (9)
  - RASH MACULAR [None]
  - GAIT DISTURBANCE [None]
  - MEMORY IMPAIRMENT [None]
  - HYPERSOMNIA [None]
  - POLYNEUROPATHY [None]
  - CONFUSIONAL STATE [None]
  - DYSPNOEA [None]
  - DIZZINESS [None]
  - FATIGUE [None]
